FAERS Safety Report 7381857-1 (Version None)
Quarter: 2011Q1

REPORT INFORMATION
  Report Type: 
  Country: None (occurrence: None)
  Receive Date: 20110324
  Receipt Date: 20110324
  Transmission Date: 20110831
  Serious: Yes (Other)
  Sender: FDA-Public Use
  Company Number: None

PATIENT
  Sex: Female
  Weight: 62.5964 kg

DRUGS (1)
  1. GENERIC TENORETIC [Suspect]
     Indication: HYPERTENSION
     Dosage: 50/25 ORALLY DAILY
     Dates: start: 20050101

REACTIONS (2)
  - BLOOD PRESSURE FLUCTUATION [None]
  - BLOOD PRESSURE INADEQUATELY CONTROLLED [None]
